FAERS Safety Report 8505804-1 (Version None)
Quarter: 2012Q3

REPORT INFORMATION
  Report Type: 
  Country: None (occurrence: None)
  Receive Date: 20120712
  Receipt Date: 20120703
  Transmission Date: 20120928
  Serious: Yes (Hospitalization, Other)
  Sender: FDA-Public Use
  Company Number: US-009507513-1110USA00793

PATIENT

DRUGS (4)
  1. VERAPAMIL [Concomitant]
     Indication: HYPERTENSION
     Dates: start: 20040601
  2. DIOVAN [Concomitant]
     Dates: start: 20040101, end: 20061101
  3. FOSAMAX [Suspect]
     Indication: OSTEOPENIA
     Dosage: 70 MG, UNK
     Route: 048
     Dates: start: 20040601, end: 20080101
  4. FOSAMAX [Suspect]
     Dosage: 70 MG, UNK
     Route: 048
     Dates: start: 20080101, end: 20090428

REACTIONS (14)
  - FRACTURE NONUNION [None]
  - CAROTID ARTERY STENOSIS [None]
  - INTERMITTENT CLAUDICATION [None]
  - ARTERIAL OCCLUSIVE DISEASE [None]
  - DUODENITIS [None]
  - FEMUR FRACTURE [None]
  - GASTROOESOPHAGEAL REFLUX DISEASE [None]
  - BONE DENSITY ABNORMAL [None]
  - DYSPEPSIA [None]
  - LABYRINTHITIS [None]
  - ARTERIOSCLEROSIS [None]
  - ARTHRALGIA [None]
  - CATARACT [None]
  - FALL [None]
